FAERS Safety Report 4492266-7 (Version None)
Quarter: 2004Q4

REPORT INFORMATION
  Report Type: 
  Country: None (occurrence: None)
  Receive Date: 20041101
  Receipt Date: 20041022
  Transmission Date: 20050328
  Serious: No
  Sender: FDA-Public Use
  Company Number: FR-2004-029596

PATIENT
  Age: 58 Year
  Sex: Female
  Weight: 61 kg

DRUGS (4)
  1. CLIMARA [Suspect]
     Indication: HORMONE REPLACEMENT THERAPY
     Dosage: 50 UG/DAY, CONT, TRANSDERMAL
     Route: 062
     Dates: start: 20001215, end: 20031202
  2. MLS-LNG-IUS (LEVONORGESTEREL) [Suspect]
     Indication: HORMONE REPLACEMENT THERAPY
     Dosage: 10 UG/DAY, CONT, INTRA-UTERINE
     Route: 015
     Dates: start: 20001215, end: 20031202
  3. OESTRODOSE [Concomitant]
  4. UTROGESTAN [Concomitant]

REACTIONS (1)
  - BREAST CANCER IN SITU [None]
